FAERS Safety Report 8418472-4 (Version None)
Quarter: 2012Q2

REPORT INFORMATION
  Report Type: 
  Country: None (occurrence: None)
  Receive Date: 20120607
  Receipt Date: 20120529
  Transmission Date: 20120825
  Serious: Yes (Other)
  Sender: FDA-Public Use
  Company Number: JP-ASTRAZENECA-2012SE37046

PATIENT
  Age: 78 Year
  Sex: Male

DRUGS (11)
  1. SENNOSIDE [Concomitant]
     Route: 048
  2. AMOXICILLIN TRIHYDRATE W/CLAVULANATE POTASSIUM [Concomitant]
     Dates: start: 20120514
  3. ENSURE [Concomitant]
     Route: 048
  4. SEROQUEL [Suspect]
     Route: 048
  5. AMITRIPTYLINE HCL [Concomitant]
  6. METLIGINE [Concomitant]
     Indication: HYPOTENSION
  7. PIPERACILLIN SODIUM [Concomitant]
  8. TAMSULOSIN HCL [Concomitant]
  9. ARTANE [Concomitant]
     Route: 048
  10. MINOCYCLINE HYDROCHLORIDE [Concomitant]
  11. YOKUKAN-SAN [Concomitant]
     Route: 048

REACTIONS (1)
  - HYPOGLYCAEMIC ENCEPHALOPATHY [None]
